FAERS Safety Report 11959130 (Version 1)
Quarter: 2016Q1

REPORT INFORMATION
  Report Type: Spontaneous
  Country: JP (occurrence: JP)
  Receive Date: 20160126
  Receipt Date: 20160126
  Transmission Date: 20160526
  Serious: Yes (Other)
  Sender: FDA-Public Use
  Company Number: JP-AMGEN-JPNSP2015133382

PATIENT
  Age: 48 Year
  Sex: Male
  Weight: 84.65 kg

DRUGS (14)
  1. CALCIUM LEVOFOLINATE [Suspect]
     Active Substance: LEVOLEUCOVORIN CALCIUM
     Indication: RECTAL CANCER
     Dosage: UNK UNK, Q2WEEKS
     Route: 041
     Dates: start: 20130607
  2. IRINOTECAN HYDROCHLORIDE. [Suspect]
     Active Substance: IRINOTECAN HYDROCHLORIDE
     Indication: RECTAL CANCER
     Dosage: UNK, Q2WEEKS
     Route: 041
     Dates: start: 20140207
  3. FLUOROURACIL. [Suspect]
     Active Substance: FLUOROURACIL
     Indication: RECTAL CANCER
     Dosage: UNK, Q2WEEKS
     Route: 041
     Dates: start: 20130607
  4. ALLELOCK [Concomitant]
     Active Substance: OLOPATADINE HYDROCHLORIDE
     Dosage: UNK
     Route: 048
     Dates: start: 20141024, end: 20150904
  5. RINDERON VG [Concomitant]
     Active Substance: BETAMETHASONE VALERATE\GENTAMICIN SULFATE
     Dosage: UNK
     Route: 062
     Dates: start: 20141010, end: 20150904
  6. NIZORAL [Concomitant]
     Active Substance: KETOCONAZOLE
     Dosage: UNK
     Route: 062
     Dates: start: 20141219, end: 20150904
  7. HIRUDOID                           /00723701/ [Concomitant]
     Active Substance: PENTOSAN POLYSULFATE SODIUM
     Dosage: UNK
     Route: 062
     Dates: start: 20140926, end: 20150904
  8. VECTIBIX [Suspect]
     Active Substance: PANITUMUMAB
     Dosage: 300 MG, Q2WEEKS
     Route: 041
     Dates: start: 20141107
  9. VECTIBIX [Suspect]
     Active Substance: PANITUMUMAB
     Dosage: 400 MG, Q2WEEKS
     Route: 041
     Dates: start: 20141120, end: 20150904
  10. VECTIBIX [Suspect]
     Active Substance: PANITUMUMAB
     Indication: RECTAL CANCER
     Dosage: 500 MG, Q2WEEKS
     Route: 041
     Dates: start: 20140926
  11. MINOMYCIN [Concomitant]
     Active Substance: MINOCYCLINE HYDROCHLORIDE
     Dosage: UNK
     Route: 065
     Dates: start: 20140926, end: 20150904
  12. GENTACIN [Concomitant]
     Active Substance: GENTAMICIN SULFATE
     Dosage: UNK
     Route: 062
     Dates: start: 20141219, end: 20150904
  13. TOPSYM [Concomitant]
     Dosage: UNK
     Route: 062
     Dates: start: 20141107, end: 20150904
  14. MYSER                              /01249201/ [Concomitant]
     Active Substance: DIFLUPREDNATE
     Dosage: UNK
     Route: 062
     Dates: start: 20140926, end: 20150904

REACTIONS (3)
  - Toxic skin eruption [Recovering/Resolving]
  - Paronychia [Unknown]
  - Dermatitis acneiform [Unknown]

NARRATIVE: CASE EVENT DATE: 20141107
